FAERS Safety Report 15467103 (Version 3)
Quarter: 2018Q4

REPORT INFORMATION
  Report Type: Spontaneous
  Country: CA (occurrence: CA)
  Receive Date: 20181005
  Receipt Date: 20181016
  Transmission Date: 20190204
  Serious: Yes (Other)
  Sender: FDA-Public Use
  Company Number: CA-BAXTER-2018BAX025001

PATIENT
  Sex: Female

DRUGS (3)
  1. BUPIVACAINE HYDROCHLORIDE. [Suspect]
     Active Substance: BUPIVACAINE HYDROCHLORIDE
     Indication: SPINAL ANAESTHESIA
     Dosage: INITIAL T6 BLOCKS OR HIGHER, ?DOSE: APPROXIMATELY 1.5 ML, SINGLE INJECTION (DURATION APPROXIMATELY
     Route: 037
     Dates: start: 20180924, end: 20180924
  2. FENTANYL. [Suspect]
     Active Substance: FENTANYL
     Indication: SPINAL ANAESTHESIA
     Dosage: INTRATHECAL ADMIXTURE
     Route: 037
     Dates: start: 20180924, end: 20180924
  3. EPIMORPH [Suspect]
     Active Substance: MORPHINE SULFATE
     Indication: SPINAL ANAESTHESIA
     Dosage: INTRATHECAL ADMIXTURE
     Route: 037
     Dates: start: 20180924, end: 20180924

REACTIONS (2)
  - Exposure during pregnancy [Unknown]
  - Drug ineffective [Unknown]

NARRATIVE: CASE EVENT DATE: 20180924
